FAERS Safety Report 5271745-9 (Version None)
Quarter: 2007Q1

REPORT INFORMATION
  Report Type: 
  Country: None (occurrence: None)
  Receive Date: 20070321
  Receipt Date: 20070309
  Transmission Date: 20070707
  Serious: Yes (Other)
  Sender: FDA-Public Use
  Company Number: NL-PFIZER INC-2007016004

PATIENT
  Sex: Male

DRUGS (5)
  1. SUTENT [Suspect]
     Indication: METASTATIC RENAL CELL CARCINOMA
     Route: 048
  2. ASCAL [Concomitant]
  3. COZAAR [Concomitant]
  4. AMLODIPINE [Concomitant]
  5. ATENOLOL [Concomitant]

REACTIONS (16)
  - ANOREXIA [None]
  - DIARRHOEA [None]
  - DRY SKIN [None]
  - DYSGEUSIA [None]
  - DYSPNOEA [None]
  - FATIGUE [None]
  - LACRIMATION INCREASED [None]
  - NAUSEA [None]
  - PAIN [None]
  - PRURITUS [None]
  - SKIN DISCOLOURATION [None]
  - SKIN IRRITATION [None]
  - STOMACH DISCOMFORT [None]
  - STOMATITIS [None]
  - URINE COLOUR ABNORMAL [None]
  - VOMITING [None]
